FAERS Safety Report 24694010 (Version 2)
Quarter: 2024Q4

REPORT INFORMATION
  Report Type: Report from Study
  Country: PE (occurrence: PE)
  Receive Date: 20241204
  Receipt Date: 20241213
  Transmission Date: 20250115
  Serious: Yes (Other)
  Sender: ROCHE
  Company Number: PE-ROCHE-10000143818

PATIENT
  Sex: Female

DRUGS (1)
  1. OCREVUS [Suspect]
     Active Substance: OCRELIZUMAB
     Indication: Product used for unknown indication
     Route: 065

REACTIONS (3)
  - Pulmonary fibrosis [Unknown]
  - COVID-19 [Unknown]
  - Post-acute COVID-19 syndrome [Recovering/Resolving]

NARRATIVE: CASE EVENT DATE: 20241101
